FAERS Safety Report 5499695-3 (Version None)
Quarter: 2007Q4

REPORT INFORMATION
  Report Type: 
  Country: None (occurrence: None)
  Receive Date: 20071026
  Receipt Date: 20071017
  Transmission Date: 20080405
  Serious: Yes (Other)
  Sender: FDA-Public Use
  Company Number: GB-ROCHE-526055

PATIENT
  Age: 31 Year
  Sex: Female
  Weight: 112.4 kg

DRUGS (1)
  1. ORLISTAT [Suspect]
     Indication: OBESITY
     Route: 048
     Dates: start: 20070413, end: 20070901

REACTIONS (1)
  - LEFT VENTRICULAR DYSFUNCTION [None]
